FAERS Safety Report 13537410 (Version 1)
Quarter: 2017Q2

REPORT INFORMATION
  Report Type: Spontaneous
  Country: US (occurrence: US)
  Receive Date: 20170511
  Receipt Date: 20170511
  Transmission Date: 20170830
  Serious: Yes (Hospitalization, Other)
  Sender: FDA-Public Use
  Company Number: US-ALLERGAN-1718417US

PATIENT
  Age: 23 Year
  Sex: Male

DRUGS (2)
  1. LEXAPRO [Suspect]
     Active Substance: ESCITALOPRAM OXALATE
     Dosage: 20 MG, UNK
     Route: 048
     Dates: start: 200410
  2. LEXAPRO [Suspect]
     Active Substance: ESCITALOPRAM OXALATE
     Indication: PRODUCT USED FOR UNKNOWN INDICATION
     Dosage: 10 MG, BID
     Route: 048
     Dates: start: 2004

REACTIONS (11)
  - Physical assault [Unknown]
  - Cognitive disorder [Unknown]
  - Amnesia [Unknown]
  - Tobacco user [Unknown]
  - Drug dose omission [Unknown]
  - Hospitalisation [Unknown]
  - Mental disorder [Unknown]
  - Anger [Unknown]
  - Depression [Unknown]
  - Hallucination [Unknown]
  - Panic attack [Unknown]

NARRATIVE: CASE EVENT DATE: 200407
